FAERS Safety Report 6875887-3 (Version None)
Quarter: 2010Q3

REPORT INFORMATION
  Report Type: 
  Country: None (occurrence: None)
  Receive Date: 20100727
  Receipt Date: 20100716
  Transmission Date: 20110219
  Serious: Yes (Other)
  Sender: FDA-Public Use
  Company Number: JP-ASTRAZENECA-2010SE34204

PATIENT
  Sex: Female

DRUGS (3)
  1. SEROQUEL [Suspect]
     Route: 048
  2. CYMBALTA [Interacting]
     Route: 048
  3. CELECOXIB [Concomitant]
     Route: 048

REACTIONS (2)
  - AKINESIA [None]
  - DRUG INTERACTION [None]
